FAERS Safety Report 7505722-1 (Version None)
Quarter: 2011Q2

REPORT INFORMATION
  Report Type: 
  Country: None (occurrence: None)
  Receive Date: 20110405
  Receipt Date: 20110223
  Transmission Date: 20111010
  Serious: No
  Sender: FDA-Public Use
  Company Number: 2011IP000030

PATIENT
  Age: 67 Year
  Sex: Female

DRUGS (4)
  1. PREDNISOLONE [Concomitant]
  2. NEVANAC [Concomitant]
  3. VIGAMOX [Concomitant]
  4. BEPREVE [Suspect]
     Indication: DRY EYE
     Dosage: 1 GTT;BID;OPH
     Route: 047
     Dates: start: 20110201, end: 20110201

REACTIONS (1)
  - DRUG INEFFECTIVE FOR UNAPPROVED INDICATION [None]
